FAERS Safety Report 9915825 (Version 1)
Quarter: 2014Q1

REPORT INFORMATION
  Report Type: Spontaneous
  Country: JP (occurrence: JP)
  Receive Date: 20140221
  Receipt Date: 20140221
  Transmission Date: 20141002
  Serious: Yes (Other)
  Sender: FDA-Public Use
  Company Number: JP-ROCHE-1353875

PATIENT
  Age: 70 Year
  Sex: Female

DRUGS (1)
  1. LUCENTIS [Suspect]
     Indication: POLYPOIDAL CHOROIDAL VASCULOPATHY
     Route: 050

REACTIONS (2)
  - Polypoidal choroidal vasculopathy [Unknown]
  - Drug ineffective [Unknown]
